FAERS Safety Report 12285086 (Version 1)
Quarter: 2016Q2

REPORT INFORMATION
  Report Type: Spontaneous
  Country: US (occurrence: None)
  Receive Date: 20160419
  Receipt Date: 20160419
  Transmission Date: 20160815
  Serious: Yes (Hospitalization)
  Sender: FDA-Public Use
  Company Number: None

PATIENT
  Age: 72 Year
  Sex: Female
  Weight: 73.5 kg

DRUGS (1)
  1. NA+ FERRIC GLUCONATE, 250 MG SANOFI-AVENTIS U.S. LLC [Suspect]
     Active Substance: SODIUM FERRIC GLUCONATE COMPLEX
     Indication: MICROCYTIC ANAEMIA
     Route: 042
     Dates: start: 20160403, end: 20160403

REACTIONS (5)
  - Hyperhidrosis [None]
  - Feeling abnormal [None]
  - Back pain [None]
  - Nausea [None]
  - Hypotension [None]

NARRATIVE: CASE EVENT DATE: 20160403
